FAERS Safety Report 4727763-X (Version None)
Quarter: 2005Q3

REPORT INFORMATION
  Report Type: 
  Country: None (occurrence: None)
  Receive Date: 20050727
  Receipt Date: 20050711
  Transmission Date: 20060218
  Serious: Yes (Hospitalization)
  Sender: FDA-Public Use
  Company Number: 2005EU001552

PATIENT
  Age: 54 Year
  Sex: Female

DRUGS (2)
  1. PROGRAF [Suspect]
     Indication: RENAL TRANSPLANT
     Dosage: D
  2. CORTICOSTEROIDS [Concomitant]

REACTIONS (12)
  - ANGIOPATHY [None]
  - ANURIA [None]
  - BLOOD CREATININE INCREASED [None]
  - COMPLICATIONS OF TRANSPLANTED KIDNEY [None]
  - DIABETES MELLITUS [None]
  - DRUG TOXICITY [None]
  - HAEMODIALYSIS [None]
  - HYPERTENSION [None]
  - HYPERTENSIVE CRISIS [None]
  - NEPHROSCLEROSIS [None]
  - PROTEINURIA [None]
  - RENAL ARTERY STENOSIS [None]
